FAERS Safety Report 16777303 (Version 1)
Quarter: 2019Q3

REPORT INFORMATION
  Report Type: Spontaneous
  Country: SA (occurrence: SA)
  Receive Date: 20190905
  Receipt Date: 20190905
  Transmission Date: 20191005
  Serious: Yes (Hospitalization)
  Sender: FDA-Public Use
  Company Number: SA-ALLERGAN-1935626US

PATIENT
  Sex: Male

DRUGS (2)
  1. ATROPINE SULFATE 1.0% SOL (0015B) [Suspect]
     Active Substance: ATROPINE SULFATE
     Indication: ADENOIDAL HYPERTROPHY
     Dosage: MULTIPLE DROPS, QD (ON THE DAY OF PRESENTATION)
     Route: 045
  2. ATROPINE SULFATE 1.0% SOL (0015B) [Suspect]
     Active Substance: ATROPINE SULFATE
     Dosage: MULTIPLE DROPS, BID (ON THE FIRST DAY)
     Route: 045

REACTIONS (12)
  - Eye movement disorder [Recovered/Resolved]
  - Aggression [Recovered/Resolved]
  - Agitation [Recovered/Resolved]
  - Inappropriate schedule of product administration [Unknown]
  - Vomiting [Recovered/Resolved]
  - Toxicity to various agents [Recovered/Resolved]
  - Generalised tonic-clonic seizure [Recovered/Resolved]
  - Loss of consciousness [Recovered/Resolved]
  - Gait disturbance [Recovered/Resolved]
  - Incorrect dose administered [Unknown]
  - Wrong product administered [Unknown]
  - Irritability [Recovered/Resolved]
